FAERS Safety Report 19085907 (Version 8)
Quarter: 2021Q3

REPORT INFORMATION
  Report Type: Other
  Country: PA (occurrence: PA)
  Receive Date: 20210402
  Receipt Date: 20210917
  Transmission Date: 20211014
  Serious: Yes (Other)
  Sender: FDA-Public Use
  Company Number: PA-ROCHE-2800777

PATIENT
  Age: 58 Year
  Sex: Female

DRUGS (4)
  1. XOLAIR [Suspect]
     Active Substance: OMALIZUMAB
     Indication: CHRONIC SPONTANEOUS URTICARIA
     Dosage: 150 MG, BIW, BENEATH THE SKIN, USUALLY VIA INJECTION
     Route: 058
     Dates: start: 20210305, end: 20210320
  2. XOLAIR [Suspect]
     Active Substance: OMALIZUMAB
     Route: 058
  3. CEFALEXIN [Concomitant]
     Active Substance: CEPHALEXIN
     Indication: PRODUCT USED FOR UNKNOWN INDICATION
     Route: 065
  4. XOLAIR [Suspect]
     Active Substance: OMALIZUMAB
     Route: 058
     Dates: start: 20210320

REACTIONS (20)
  - Pruritus [Unknown]
  - Throat irritation [Recovered/Resolved]
  - Off label use [Unknown]
  - Blood pressure decreased [Unknown]
  - Pain in extremity [Unknown]
  - Puncture site pain [Recovering/Resolving]
  - Cellulitis [Recovering/Resolving]
  - Headache [Recovering/Resolving]
  - Urticaria [Not Recovered/Not Resolved]
  - Erythema [Recovering/Resolving]
  - Lip oedema [Not Recovered/Not Resolved]
  - Malaise [Unknown]
  - Swelling face [Unknown]
  - Urticaria [Unknown]
  - Insomnia [Unknown]
  - Hypersensitivity [Unknown]
  - Inflammation [Unknown]
  - Feeling abnormal [Unknown]
  - Limb injury [Unknown]
  - Anxiety [Unknown]

NARRATIVE: CASE EVENT DATE: 20210305
